FAERS Safety Report 6180763-8 (Version None)
Quarter: 2009Q2

REPORT INFORMATION
  Report Type: 
  Country: None (occurrence: None)
  Receive Date: 20090506
  Receipt Date: 20081217
  Transmission Date: 20091009
  Serious: No
  Sender: FDA-Public Use
  Company Number: A0760929A

PATIENT
  Age: 20 Year
  Sex: Female

DRUGS (1)
  1. AMOXICILLIN [Suspect]
     Indication: STREPTOCOCCAL INFECTION
     Route: 048
     Dates: start: 19780101

REACTIONS (1)
  - DRUG INEFFECTIVE [None]
